FAERS Safety Report 7889435-2 (Version None)
Quarter: 2011Q4

REPORT INFORMATION
  Report Type: 
  Country: None (occurrence: None)
  Receive Date: 20111103
  Receipt Date: 20111028
  Transmission Date: 20120403
  Serious: Yes (Death)
  Sender: FDA-Public Use
  Company Number: DE-PFIZER INC-2011254487

PATIENT
  Age: 45 Year
  Sex: Female
  Weight: 82 kg

DRUGS (9)
  1. VANCOMYCIN [Concomitant]
     Indication: INFECTION
     Dosage: 2 G DAILY
     Route: 042
     Dates: start: 20111013, end: 20111017
  2. IDARUBICIN HCL [Suspect]
     Indication: ACUTE MYELOID LEUKAEMIA
     Dosage: 22.44 MG DAILY
     Dates: start: 20110930, end: 20111005
  3. CYTARABINE [Suspect]
     Indication: ACUTE MYELOID LEUKAEMIA
     Dosage: 187 MG DAILY
     Dates: start: 20110930, end: 20111007
  4. ETOPOSIDE [Suspect]
     Indication: ACUTE MYELOID LEUKAEMIA
     Dosage: 187 MG
     Dates: start: 20110930, end: 20111005
  5. ATRACURIUM BESYLATE [Suspect]
     Dosage: DOSE ILLEGIBLE, LESS THAN 80 MG
     Dates: start: 20111009, end: 20111017
  6. ATRACURIUM BESYLATE [Suspect]
     Indication: ACUTE MYELOID LEUKAEMIA
     Dosage: 80 MG DAILY
     Dates: start: 20111006, end: 20111008
  7. METRONIDAZOLE [Concomitant]
     Indication: INFECTION
     Dosage: 1.5 G DAILY
     Route: 042
     Dates: start: 20111015, end: 20111017
  8. KEVATRIL [Concomitant]
     Indication: ANTIEMETIC SUPPORTIVE CARE
     Dosage: 0.5 DF, 1X/DAY
     Route: 042
     Dates: start: 20110930, end: 20111006
  9. MEROPENEM [Concomitant]
     Indication: INFECTION
     Dosage: 3 G DAILY
     Route: 042
     Dates: start: 20111012, end: 20111017

REACTIONS (5)
  - SEPSIS [None]
  - DIARRHOEA [None]
  - GASTROINTESTINAL PERFORATION [None]
  - CARDIAC ARREST [None]
  - NEUTROPENIA [None]
